FAERS Safety Report 6767275-5 (Version None)
Quarter: 2010Q2

REPORT INFORMATION
  Report Type: 
  Country: None (occurrence: None)
  Receive Date: 20100614
  Receipt Date: 20100602
  Transmission Date: 20101027
  Serious: Yes (Other)
  Sender: FDA-Public Use
  Company Number: US-ASTRAZENECA-2007UW11993

PATIENT
  Age: 19223 Day
  Sex: Female
  Weight: 52.2 kg

DRUGS (5)
  1. SEROQUEL [Suspect]
     Route: 048
     Dates: start: 20020521
  2. LISINOPRIL [Concomitant]
     Dates: start: 20060726
  3. HYZAAR [Concomitant]
     Dosage: 100-25  TAKE ON ETABLET ONE TIME A DAY
     Dates: start: 20020506
  4. ZOLOFT [Concomitant]
     Dates: start: 20020521
  5. ESTRADIOL [Concomitant]
     Dates: start: 20020605

REACTIONS (2)
  - NEUROPATHY PERIPHERAL [None]
  - TYPE 2 DIABETES MELLITUS [None]
